FAERS Safety Report 19461723 (Version 2)
Quarter: 2021Q3

REPORT INFORMATION
  Report Type: Report from Study
  Country: BR (occurrence: BR)
  Receive Date: 20210625
  Receipt Date: 20210802
  Transmission Date: 20211014
  Serious: Yes (Death, Other)
  Sender: FDA-Public Use
  Company Number: BR-B.I. PHARMACEUTICALS,INC./RIDGEFIELD-2021-BI-111211

PATIENT
  Age: 68 Year
  Sex: Male
  Weight: 45 kg

DRUGS (1)
  1. OFEV [Suspect]
     Active Substance: NINTEDANIB
     Indication: IDIOPATHIC PULMONARY FIBROSIS
     Route: 048
     Dates: start: 202102, end: 20210504

REACTIONS (6)
  - Cardiac arrest [Unknown]
  - Feeling abnormal [Unknown]
  - Sudden death [Fatal]
  - Blood pressure decreased [Unknown]
  - Hypophagia [Unknown]
  - Dyspnoea [Unknown]

NARRATIVE: CASE EVENT DATE: 20210525
